FAERS Safety Report 7883767-X (Version None)
Quarter: 2011Q4

REPORT INFORMATION
  Report Type: 
  Country: None (occurrence: None)
  Receive Date: 20111102
  Receipt Date: 20111021
  Transmission Date: 20120403
  Serious: Yes (Other)
  Sender: FDA-Public Use
  Company Number: JP-UCBSA-044435

PATIENT
  Age: 40 Year
  Sex: Male

DRUGS (1)
  1. XYZAL [Suspect]
     Indication: PRURITUS
     Route: 048
     Dates: start: 20110917

REACTIONS (1)
  - ERYTHEMA MULTIFORME [None]
